FAERS Safety Report 4825016-2 (Version None)
Quarter: 2005Q4

REPORT INFORMATION
  Report Type: 
  Country: None (occurrence: None)
  Receive Date: 20051110
  Receipt Date: 20051031
  Transmission Date: 20060501
  Serious: Yes (Hospitalization)
  Sender: FDA-Public Use
  Company Number: JP-ABBOTT-05P-087-0316066-00

PATIENT
  Sex: Male

DRUGS (9)
  1. KLARICID DRY SYRUP [Suspect]
     Indication: PNEUMONIA
     Route: 048
     Dates: start: 20051020, end: 20051025
  2. CEFDINIR [Suspect]
     Indication: PYREXIA
     Dates: start: 20051015
  3. CEFDINIR [Suspect]
     Indication: COUGH
  4. CEFOTIAM HYDROCHLORIDE [Suspect]
     Indication: PNEUMONIA
     Route: 042
     Dates: start: 20051022, end: 20051025
  5. CYPROHEPTADINE HYDROCHLORIDE [Concomitant]
     Indication: PNEUMONIA
     Route: 048
     Dates: start: 20051020, end: 20051031
  6. TIPEPIDINE HIBENZATE [Concomitant]
     Indication: PNEUMONIA
     Route: 048
     Dates: start: 20051020, end: 20051031
  7. PROCATEROL HCL [Concomitant]
     Indication: PNEUMONIA
     Route: 048
     Dates: start: 20051020, end: 20051031
  8. AMBROXOL HYDROCHLORIDE [Concomitant]
     Indication: PNEUMONIA
     Route: 048
     Dates: start: 20051020, end: 20051031
  9. CEFDINIR [Concomitant]
     Indication: PNEUMONIA
     Route: 048
     Dates: start: 20051015

REACTIONS (4)
  - OEDEMA [None]
  - PNEUMONIA [None]
  - RASH [None]
  - RASH GENERALISED [None]
